FAERS Safety Report 13646885 (Version 1)
Quarter: 2017Q2

REPORT INFORMATION
  Report Type: Spontaneous
  Country: US (occurrence: US)
  Receive Date: 20170613
  Receipt Date: 20170613
  Transmission Date: 20170830
  Serious: Yes (Other)
  Sender: FDA-Public Use
  Company Number: None

PATIENT
  Age: 60 Year
  Sex: Female
  Weight: 46.31 kg

DRUGS (12)
  1. TRAVATAN [Concomitant]
     Active Substance: TRAVOPROST
  2. MULTI-VITAMIN [Concomitant]
     Active Substance: .ALPHA.-TOCOPHEROL ACETATE, DL-\ASCORBIC ACID\CYANOCOBALAMIN\FLUORIDE ION\FOLIC ACID\NIACIN\PYRIDOXINE\RIBOFLAVIN\THIAMINE\VITAMIN A\VITAMIN D
  3. CALCIUM [Concomitant]
     Active Substance: CALCIUM
  4. PROLIA [Suspect]
     Active Substance: DENOSUMAB
     Indication: OSTEOPOROSIS
     Dosage: 1 INJECTION ONCE EVERY 6 MONTHS
     Dates: start: 20170126
  5. VITAMIN C [Concomitant]
     Active Substance: ASCORBIC ACID
  6. AMBIEN [Concomitant]
     Active Substance: ZOLPIDEM TARTRATE
  7. VALACYCLOVIR HCL [Concomitant]
     Active Substance: VALACYCLOVIR HYDROCHLORIDE
  8. D [Concomitant]
  9. B [Concomitant]
  10. E [Concomitant]
  11. MILK THISTLE [Concomitant]
     Active Substance: MILK THISTLE
  12. GLUCOSAMINE [Concomitant]
     Active Substance: GLUCOSAMINE

REACTIONS (6)
  - Herpes simplex [None]
  - Urticaria [None]
  - Malpositioned teeth [None]
  - Myalgia [None]
  - Groin pain [None]
  - Bladder disorder [None]

NARRATIVE: CASE EVENT DATE: 20170311
